FAERS Safety Report 12448867 (Version 2)
Quarter: 2016Q3

REPORT INFORMATION
  Report Type: Report from Study
  Country: JP (occurrence: JP)
  Receive Date: 20160608
  Receipt Date: 20160802
  Transmission Date: 20161109
  Serious: Yes (Death, Hospitalization)
  Sender: FDA-Public Use
  Company Number: JP-EISAI MEDICAL RESEARCH-EC-2016-017520

PATIENT
  Age: 65 Year
  Sex: Female
  Weight: 54 kg

DRUGS (13)
  1. PROTECADIN [Concomitant]
     Active Substance: LAFUTIDINE
  2. ALBUMIN [Concomitant]
     Active Substance: ALBUMIN HUMAN
  3. DENOTAS [Concomitant]
     Active Substance: CALCIUM CARBONATE\CHOLECALCIFEROL\MAGNESIUM CARBONATE
  4. REBAMIPIDE [Concomitant]
     Active Substance: REBAMIPIDE
  5. FUROSEMIDE. [Concomitant]
     Active Substance: FUROSEMIDE
  6. LOXOPROFEN [Concomitant]
     Active Substance: LOXOPROFEN
  7. WARFARIN [Concomitant]
     Active Substance: WARFARIN
  8. HISHIPHAGENC [Concomitant]
  9. MAGMITT [Concomitant]
     Active Substance: MAGNESIUM OXIDE
  10. RINDERON V [Concomitant]
     Active Substance: BETAMETHASONE VALERATE
  11. HYALEIN [Concomitant]
     Active Substance: HYALURONATE SODIUM
  12. HALAVEN [Suspect]
     Active Substance: ERIBULIN MESYLATE
     Indication: BREAST CANCER RECURRENT
     Route: 041
     Dates: start: 20150930, end: 20150930
  13. FERROUS SULFATE. [Concomitant]
     Active Substance: FERROUS SULFATE

REACTIONS (6)
  - Hyperbilirubinaemia [Not Recovered/Not Resolved]
  - Lymphopenia [Recovered/Resolved]
  - Leukopenia [Recovered/Resolved]
  - Malignant neoplasm progression [Fatal]
  - Stomatitis [Recovering/Resolving]
  - Febrile neutropenia [Recovered/Resolved]

NARRATIVE: CASE EVENT DATE: 20151006
